FAERS Safety Report 24249781 (Version 1)
Quarter: 2024Q3

REPORT INFORMATION
  Report Type: Spontaneous
  Country: US (occurrence: None)
  Receive Date: 20240823
  Receipt Date: 20240823
  Transmission Date: 20241016
  Serious: No
  Sender: Public
  Company Number: None

PATIENT
  Age: 33 Year
  Sex: Female

DRUGS (1)
  1. MONISTAT 7 [Suspect]
     Active Substance: MICONAZOLE NITRATE
     Indication: Vulvovaginal mycotic infection
     Dosage: OTHER STRENGTH : BOX SAID ^LOW^?OTHER QUANTITY : 1 SUPPOSITORY(IES)?FREQUENCY : AT BEDTIME?
     Route: 067
     Dates: start: 20230801, end: 20230801

REACTIONS (2)
  - Vulvovaginal pain [None]
  - Drug ineffective [None]

NARRATIVE: CASE EVENT DATE: 20230801
